FAERS Safety Report 5055891-0 (Version None)
Quarter: 2006Q3

REPORT INFORMATION
  Report Type: 
  Country: None (occurrence: None)
  Receive Date: 20060717
  Receipt Date: 20060704
  Transmission Date: 20061208
  Serious: Yes (Hospitalization)
  Sender: FDA-Public Use
  Company Number: 2006069685

PATIENT
  Age: 71 Year
  Sex: Female
  Weight: 54.5 kg

DRUGS (14)
  1. SUTENT [Suspect]
     Indication: METASTATIC RENAL CELL CARCINOMA
     Dosage: (37.5 MG, INTERVAL:  4 WKS ON/2 OFF), ORAL
     Route: 048
     Dates: end: 20060525
  2. CATAPRES [Concomitant]
  3. AVEENO CREAM (ALLANTOIN, AVENA, GLYCEROL) [Concomitant]
  4. COLACE (DOCUSATE SODIUM) [Concomitant]
  5. LACTULOSE [Concomitant]
  6. LOPRESSOR [Concomitant]
  7. SENOKOT [Concomitant]
  8. ALDACTONE [Concomitant]
  9. CARDURA [Concomitant]
  10. SYNTHROID [Concomitant]
  11. ATIVAN [Concomitant]
  12. PANTOPRAZOLE SODIUM [Concomitant]
  13. ALUMINUM HYDROXIDE AND MAGNESIUM TRISILICATE [Concomitant]
  14. APRESOLINE [Concomitant]

REACTIONS (10)
  - DRUG TOXICITY [None]
  - GLOMERULAR VASCULAR DISORDER [None]
  - IATROGENIC INJURY [None]
  - KIDNEY FIBROSIS [None]
  - NEPHROLITHIASIS [None]
  - NEPHROTIC SYNDROME [None]
  - PLEURAL EFFUSION [None]
  - RENAL ARTERIOSCLEROSIS [None]
  - RENAL TUBULAR ATROPHY [None]
  - THROMBOTIC MICROANGIOPATHY [None]
